FAERS Safety Report 4430721-6 (Version None)
Quarter: 2004Q3

REPORT INFORMATION
  Report Type: 
  Country: None (occurrence: None)
  Receive Date: 20040819
  Receipt Date: 20040819
  Transmission Date: 20050211
  Serious: Yes (Hospitalization)
  Sender: FDA-Public Use
  Company Number: None

PATIENT
  Age: 55 Year
  Sex: Male
  Weight: 89.6 kg

DRUGS (1)
  1. TRAMADOL HCL [Suspect]
     Indication: PAIN IN EXTREMITY
     Dosage: 50 MG TWICE DAIL ORAL
     Route: 048
     Dates: start: 20040810, end: 20040810

REACTIONS (3)
  - CHEST DISCOMFORT [None]
  - CHEST PAIN [None]
  - ELECTROCARDIOGRAM ABNORMAL [None]
